FAERS Safety Report 8363129-1 (Version None)
Quarter: 2012Q2

REPORT INFORMATION
  Report Type: 
  Country: None (occurrence: None)
  Receive Date: 20120514
  Receipt Date: 20120514
  Transmission Date: 20120825
  Serious: Yes (Hospitalization)
  Sender: FDA-Public Use
  Company Number: None

PATIENT
  Age: 83 Year
  Sex: Female
  Weight: 46.8 kg

DRUGS (1)
  1. BENZOCAINE ORAL ANETHESTIC 20% BEUTLICH PHARMACEUTICALS [Suspect]
     Indication: ENDOSCOPY
     Dates: start: 20120424, end: 20120424

REACTIONS (2)
  - RESPIRATORY ARREST [None]
  - CYANOSIS [None]
